FAERS Safety Report 11281801 (Version 3)
Quarter: 2015Q3

REPORT INFORMATION
  Report Type: Spontaneous
  Country: US (occurrence: US)
  Receive Date: 20150717
  Receipt Date: 20150910
  Transmission Date: 20151125
  Serious: No
  Sender: FDA-Public Use
  Company Number: ALCN2015US004164

PATIENT
  Sex: Female

DRUGS (1)
  1. CIPRODEX [Suspect]
     Active Substance: CIPROFLOXACIN HYDROCHLORIDE\DEXAMETHASONE
     Indication: EAR INFECTION
     Dosage: 2 GTT, UNK
     Route: 001
     Dates: start: 20150320, end: 20150629

REACTIONS (4)
  - Ear pruritus [Not Recovered/Not Resolved]
  - Ear swelling [Not Recovered/Not Resolved]
  - Rash [Not Recovered/Not Resolved]
  - Erythema [Not Recovered/Not Resolved]
